FAERS Safety Report 7124393-X (Version None)
Quarter: 2010Q4

REPORT INFORMATION
  Report Type: 
  Country: None (occurrence: None)
  Receive Date: 20101126
  Receipt Date: 20101112
  Transmission Date: 20110411
  Serious: Yes (Other)
  Sender: FDA-Public Use
  Company Number: GXKR2010GB12837

PATIENT
  Age: 69 Year
  Sex: Male

DRUGS (13)
  1. ATENOLOL (NGX) [Suspect]
     Dosage: 25 MG, QD
     Route: 065
  2. CANDESARTAN CILEXETIL [Suspect]
     Dosage: 8 MG, QD
     Route: 065
  3. ISOSORBIDE MONONITRATE [Suspect]
     Dosage: 30 MG, BID
     Route: 065
  4. LANSOPRAZOLE [Suspect]
     Dosage: 30 MG, QD
     Route: 065
  5. METHOTREXATE (NGX) [Suspect]
     Dosage: 17.5 MG, QW
     Route: 065
  6. PRAVASTATIN [Suspect]
     Dosage: 20 MG, QD
     Route: 065
  7. SIMVASTATIN [Suspect]
     Route: 065
  8. FLURBIPROFEN [Suspect]
     Dosage: 50 MG, BID
     Route: 065
  9. FOLIC ACID [Suspect]
     Dosage: 15 MG, QW
     Route: 065
  10. NICORANDIL [Suspect]
     Dosage: 10 MG, BID
     Route: 065
  11. ACETYLSALICYLIC ACID [Concomitant]
     Dosage: 75 MG, QD
     Route: 065
  12. CALCIPOTRIOL [Concomitant]
  13. GUAR GUM [Concomitant]
     Dosage: 1 DF, QID

REACTIONS (1)
  - ABNORMAL DREAMS [None]
